FAERS Safety Report 13888940 (Version 5)
Quarter: 2019Q4

REPORT INFORMATION
  Report Type: Spontaneous
  Country: US (occurrence: US)
  Receive Date: 20170822
  Receipt Date: 20191226
  Transmission Date: 20200122
  Serious: Yes (Hospitalization, Other)
  Sender: FDA-Public Use
  Company Number: US-BRISTOL-MYERS SQUIBB COMPANY-BMS-2017-075394

PATIENT
  Age: 80 Year
  Sex: Female
  Weight: 47.17 kg

DRUGS (3)
  1. ELIQUIS [Suspect]
     Active Substance: APIXABAN
     Indication: PRODUCT USED FOR UNKNOWN INDICATION
     Dosage: 2.5 MILLIGRAM, BID
     Route: 048
  2. METOPROLOL. [Concomitant]
     Active Substance: METOPROLOL
     Indication: PRODUCT USED FOR UNKNOWN INDICATION
     Dosage: UNK
     Route: 065
  3. ELIQUIS [Suspect]
     Active Substance: APIXABAN
     Indication: CEREBROVASCULAR ACCIDENT PROPHYLAXIS
     Dosage: 5 MILLIGRAM
     Route: 048
     Dates: start: 2017

REACTIONS (13)
  - Varicose vein [Unknown]
  - Weight decreased [Unknown]
  - Contusion [Unknown]
  - Thinking abnormal [Unknown]
  - Headache [Unknown]
  - Urticaria [Unknown]
  - Atrial fibrillation [Unknown]
  - Road traffic accident [Unknown]
  - Muscular weakness [Unknown]
  - Blood pressure increased [Unknown]
  - Paraesthesia [Unknown]
  - Haemorrhage [Unknown]
  - Pelvic fracture [Unknown]

NARRATIVE: CASE EVENT DATE: 20190608
